FAERS Safety Report 6044175-X (Version None)
Quarter: 2009Q1

REPORT INFORMATION
  Report Type: 
  Country: None (occurrence: None)
  Receive Date: 20090120
  Receipt Date: 20090119
  Transmission Date: 20090719
  Serious: Yes (Hospitalization)
  Sender: FDA-Public Use
  Company Number: JP-ASTRAZENECA-2009AP00593

PATIENT
  Age: 79 Year
  Sex: Female

DRUGS (2)
  1. OMEPRAL [Suspect]
     Dosage: DOSE UNKNOWN
     Route: 048
  2. LOCHOL [Concomitant]
     Dosage: DOSE UNKNOWN
     Route: 048

REACTIONS (1)
  - HEPATIC FUNCTION ABNORMAL [None]
